FAERS Safety Report 8318265-2 (Version None)
Quarter: 2012Q2

REPORT INFORMATION
  Report Type: 
  Country: None (occurrence: None)
  Receive Date: 20120427
  Receipt Date: 20120424
  Transmission Date: 20120825
  Serious: Yes (Hospitalization, Other)
  Sender: FDA-Public Use
  Company Number: US-AMGEN-USASP2011064927

PATIENT
  Age: 49 Year
  Sex: Male
  Weight: 86 kg

DRUGS (7)
  1. TYLENOL PM [Concomitant]
     Indication: INSOMNIA
  2. NEUPOGEN [Suspect]
     Indication: NEUTROPENIA
     Dosage: 300 MUG, QWK
     Route: 058
     Dates: start: 20111101, end: 20111117
  3. PROTEASE INHIBITORS [Suspect]
     Indication: HEPATITIS C
     Dosage: 240 MG, QD
     Route: 048
     Dates: start: 20111011, end: 20111118
  4. EPOGEN [Suspect]
     Indication: HEPATITIS C
     Dosage: UNK UNK, ONE TIME DOSE
  5. RIBAVIRIN [Suspect]
     Indication: HEPATITIS C
     Dosage: 1200 MUG, UNK
     Route: 048
     Dates: start: 20111011, end: 20111118
  6. DARBEPOETIN ALFA [Suspect]
     Indication: HEPATITIS C
     Dosage: 200 MUG/KG, QWK
     Route: 058
     Dates: start: 20111119
  7. PEGINTERFERON ALFA [Suspect]
     Indication: HEPATITIS C
     Dosage: 135 MUG, UNK
     Route: 058
     Dates: start: 20111011, end: 20111115

REACTIONS (12)
  - SPUTUM DISCOLOURED [None]
  - COUGH [None]
  - ANAEMIA [None]
  - FATIGUE [None]
  - PANCYTOPENIA [None]
  - ECZEMA [None]
  - PYREXIA [None]
  - HYPERHIDROSIS [None]
  - XEROSIS [None]
  - PALLOR [None]
  - DYSPNOEA [None]
  - MALAISE [None]
